FAERS Safety Report 16383632 (Version 1)
Quarter: 2019Q3

REPORT INFORMATION
  Report Type: Spontaneous
  Country: US (occurrence: US)
  Receive Date: 20190531
  Receipt Date: 20190531
  Transmission Date: 20191004
  Serious: Yes (Hospitalization)
  Sender: FDA-Public Use
  Company Number: None

PATIENT
  Age: 66 Year
  Sex: Female
  Weight: 72 kg

DRUGS (7)
  1. ATORVASTATIN [Concomitant]
     Active Substance: ATORVASTATIN
  2. NERLYNX [Suspect]
     Active Substance: NERATINIB
     Indication: BREAST CANCER FEMALE
     Dates: start: 20190227
  3. OXYCODONE [Concomitant]
     Active Substance: OXYCODONE
  4. LOPERAMIDE [Concomitant]
     Active Substance: LOPERAMIDE
  5. LOSARTAN-POTASSIUM-HCTZ [Concomitant]
  6. ONDANSETRON [Concomitant]
     Active Substance: ONDANSETRON
  7. CAPECITABINE. [Suspect]
     Active Substance: CAPECITABINE
     Indication: BREAST CANCER FEMALE
     Route: 048
     Dates: start: 20190318

REACTIONS (5)
  - Urinary tract infection [None]
  - Renal disorder [None]
  - Clostridium difficile colitis [None]
  - Gastric neoplasm [None]
  - Confusional state [None]
